FAERS Safety Report 6608179-8 (Version None)
Quarter: 2010Q1

REPORT INFORMATION
  Report Type: 
  Country: None (occurrence: None)
  Receive Date: 20100301
  Receipt Date: 20090312
  Transmission Date: 20100710
  Serious: No
  Sender: FDA-Public Use
  Company Number: A0773040A

PATIENT
  Age: 12 Year
  Sex: Male

DRUGS (5)
  1. ZIAGEN [Suspect]
     Indication: HIV INFECTION
     Dosage: 300MG TWICE PER DAY
     Route: 048
     Dates: start: 20090204
  2. DARUNAVIR [Suspect]
     Dosage: 400MG TWICE PER DAY
     Route: 048
     Dates: start: 20090204
  3. RALTEGRAVIR [Suspect]
     Dosage: 400MG TWICE PER DAY
     Route: 048
     Dates: start: 20090201
  4. RITONAVIR [Suspect]
     Dosage: 100MG TWICE PER DAY
     Route: 048
     Dates: start: 20090204
  5. DESMOPRESSIN ACETATE [Concomitant]

REACTIONS (3)
  - INSOMNIA [None]
  - PERSONALITY CHANGE [None]
  - PSYCHOMOTOR HYPERACTIVITY [None]
